FAERS Safety Report 12943447 (Version 1)
Quarter: 2016Q4

REPORT INFORMATION
  Report Type: Spontaneous
  Country: RU (occurrence: RU)
  Receive Date: 20161115
  Receipt Date: 20161115
  Transmission Date: 20170207
  Serious: Yes (Hospitalization)
  Sender: FDA-Public Use
  Company Number: RU-GLAXOSMITHKLINE-RU2016GSK167693

PATIENT
  Sex: Female
  Weight: 77 kg

DRUGS (17)
  1. FENOTEROLUM [Concomitant]
     Dosage: UNK UNK, PRN
     Dates: start: 201403
  2. MONTELUKASTUM [Concomitant]
     Dosage: 10 MG, QD
  3. FLUTICASONE PROPIONATE. [Suspect]
     Active Substance: FLUTICASONE PROPIONATE
     Dosage: 125 ?G, BID
     Dates: end: 201604
  4. SALBUTAMOL [Suspect]
     Active Substance: ALBUTEROL
     Indication: PRODUCT USED FOR UNKNOWN INDICATION
  5. IPRATROPIUM BROMIDE/FENOTEROL [Concomitant]
     Dosage: 2 DF, BID
  6. BUDESONIDE. [Concomitant]
     Active Substance: BUDESONIDE
     Dosage: 2000 UNK, QD
     Dates: start: 201403
  7. FLUTICASONE PROPIONATE+SALMETEROL XINAFOATE [Concomitant]
     Active Substance: FLUTICASONE PROPIONATE\SALMETEROL XINAFOATE
     Dosage: UNK
  8. FLUTICASONE FUROATE + VILANTEROL TRIFENATATE [Concomitant]
     Active Substance: FLUTICASONE FUROATE\VILANTEROL TRIFENATATE
     Dosage: UNK
     Dates: start: 201604
  9. FLUTICASONE PROPIONATE. [Suspect]
     Active Substance: FLUTICASONE PROPIONATE
     Dosage: 250 ?G, BID
     Dates: start: 201504
  10. FORMOTEROL [Concomitant]
     Active Substance: FORMOTEROL
     Indication: ASTHMA
  11. METYPRED [Concomitant]
     Active Substance: METHYLPREDNISOLONE
     Dosage: 8 DF, QD
     Dates: start: 2010
  12. METYPRED [Concomitant]
     Active Substance: METHYLPREDNISOLONE
     Dosage: UNK
  13. FLUTICASONE PROPIONATE. [Suspect]
     Active Substance: FLUTICASONE PROPIONATE
     Indication: ASTHMA
     Dosage: UNK
  14. TIOTROPIUM [Concomitant]
     Active Substance: TIOTROPIUM
     Dosage: 18 UNK, QD
     Dates: start: 201409, end: 201412
  15. FLUTICASONE PROPIONATE. [Suspect]
     Active Substance: FLUTICASONE PROPIONATE
     Dosage: 125 ?G, QD
     Dates: start: 201509
  16. METYPRED [Concomitant]
     Active Substance: METHYLPREDNISOLONE
     Dosage: 2 MG, UNK
     Dates: start: 201403
  17. PANTOPRAZOLE [Concomitant]
     Active Substance: PANTOPRAZOLE SODIUM
     Dosage: 20 MG, QD

REACTIONS (6)
  - Respiratory tract infection viral [Unknown]
  - Dyspnoea exertional [Unknown]
  - Breath sounds abnormal [Unknown]
  - Asthma [Unknown]
  - Chest discomfort [Unknown]
  - Intentional product misuse [Unknown]

NARRATIVE: CASE EVENT DATE: 201509
